FAERS Safety Report 24978145 (Version 4)
Quarter: 2025Q2

REPORT INFORMATION
  Report Type: Spontaneous
  Country: AR (occurrence: AR)
  Receive Date: 20250217
  Receipt Date: 20250421
  Transmission Date: 20250717
  Serious: No
  Sender: PFIZER
  Company Number: AR-PFIZER INC-202500034698

PATIENT
  Age: 9 Year
  Sex: Female

DRUGS (1)
  1. GENOTROPIN [Suspect]
     Active Substance: SOMATROPIN
     Indication: Short stature
     Dates: start: 20230112, end: 20250210

REACTIONS (3)
  - Drug dose omission by device [Unknown]
  - Device breakage [Recovered/Resolved]
  - Device mechanical issue [Unknown]

NARRATIVE: CASE EVENT DATE: 20250110
